FAERS Safety Report 21515314 (Version 2)
Quarter: 2022Q4

REPORT INFORMATION
  Report Type: Other
  Country: TR (occurrence: None)
  Receive Date: 20221027
  Receipt Date: 20221030
  Transmission Date: 20230113
  Serious: Yes (Life-Threatening, Hospitalization, Other)
  Sender: FDA-Public Use
  Company Number: TR-DEXPHARM-20222163

PATIENT
  Age: 27 Year
  Sex: Male

DRUGS (3)
  1. DICLOFENAC SODIUM [Interacting]
     Active Substance: DICLOFENAC SODIUM
     Indication: Myalgia
     Dosage: DICLOFENAC SODIUM (50 MG) TABLET ONCE A DAY FOR 1 WEEK
  2. DICLOFENAC SODIUM [Interacting]
     Active Substance: DICLOFENAC SODIUM
     Indication: Suicide attempt
     Dosage: 15 DICLOFENAC SODIUM TABLETS (750 MG) ; IN TOTAL
  3. ACTIVATED CHARCOAL [Interacting]
     Active Substance: ACTIVATED CHARCOAL

REACTIONS (5)
  - Suicide attempt [Recovered/Resolved]
  - Toxicity to various agents [Recovered/Resolved]
  - Duodenal ulcer perforation [Recovered/Resolved]
  - Peritonitis [Recovered/Resolved]
  - Drug interaction [Recovered/Resolved]
